FAERS Safety Report 5192073-6 (Version None)
Quarter: 2006Q4

REPORT INFORMATION
  Report Type: 
  Country: None (occurrence: None)
  Receive Date: 20061221
  Receipt Date: 20061221
  Transmission Date: 20070319
  Serious: Yes (Hospitalization)
  Sender: FDA-Public Use
  Company Number: None

PATIENT
  Sex: Female
  Weight: 56.246 kg

DRUGS (9)
  1. ISONIAZID [Suspect]
     Indication: TUBERCULOSIS
     Dosage: 300MG  QD  PO
     Route: 048
     Dates: start: 20060712
  2. ISONIAZID [Suspect]
     Indication: TUBERCULOSIS SKIN TEST POSITIVE
     Dosage: 300MG  QD  PO
     Route: 048
     Dates: start: 20060712
  3. ISONIAZID [Suspect]
     Indication: TUBERCULOSIS
     Dosage: 300MG  QD  PO
     Route: 048
     Dates: start: 20060811
  4. ISONIAZID [Suspect]
     Indication: TUBERCULOSIS SKIN TEST POSITIVE
     Dosage: 300MG  QD  PO
     Route: 048
     Dates: start: 20060811
  5. ISONIAZID [Suspect]
     Indication: TUBERCULOSIS
     Dosage: 300MG  QD  PO
     Route: 048
     Dates: start: 20060911
  6. ISONIAZID [Suspect]
     Indication: TUBERCULOSIS SKIN TEST POSITIVE
     Dosage: 300MG  QD  PO
     Route: 048
     Dates: start: 20060911
  7. ISONIAZID [Suspect]
     Indication: TUBERCULOSIS
     Dosage: 300MG  QD  PO
     Route: 048
     Dates: start: 20061114
  8. ISONIAZID [Suspect]
     Indication: TUBERCULOSIS SKIN TEST POSITIVE
     Dosage: 300MG  QD  PO
     Route: 048
     Dates: start: 20061114
  9. ISONIAZID [Suspect]

REACTIONS (3)
  - ALANINE AMINOTRANSFERASE INCREASED [None]
  - ASPARTATE AMINOTRANSFERASE INCREASED [None]
  - LIVER FUNCTION TEST ABNORMAL [None]
